FAERS Safety Report 8371473-7 (Version None)
Quarter: 2012Q2

REPORT INFORMATION
  Report Type: 
  Country: None (occurrence: None)
  Receive Date: 20120518
  Receipt Date: 20120509
  Transmission Date: 20120825
  Serious: Yes (Hospitalization)
  Sender: FDA-Public Use
  Company Number: FR-ABBOTT-12P-056-0934180-00

PATIENT
  Age: 29 Year
  Sex: Male

DRUGS (4)
  1. HUMIRA [Suspect]
     Route: 058
     Dates: start: 20081217, end: 20090220
  2. HUMIRA [Suspect]
     Indication: CROHN'S DISEASE
     Route: 058
     Dates: start: 20081009, end: 20081009
  3. HUMIRA [Suspect]
     Dosage: WEEK 2
     Route: 058
  4. SPASFON [Concomitant]
     Indication: ABDOMINAL PAIN
     Dates: start: 20090410

REACTIONS (1)
  - CROHN'S DISEASE [None]
